FAERS Safety Report 5815418-X (Version None)
Quarter: 2008Q3

REPORT INFORMATION
  Report Type: 
  Country: None (occurrence: None)
  Receive Date: 20080715
  Receipt Date: 20080701
  Transmission Date: 20090109
  Serious: No
  Sender: FDA-Public Use
  Company Number: WAES 0805PRT00008

PATIENT
  Age: 38 Year
  Sex: Male

DRUGS (6)
  1. ISENTRESS [Suspect]
     Indication: HIV INFECTION
     Dosage: 400 MG/BID PO; 400 MG/BID PO
     Route: 048
     Dates: start: 20080128, end: 20080509
  2. ISENTRESS [Suspect]
     Indication: HIV INFECTION
     Dosage: 400 MG/BID PO; 400 MG/BID PO
     Route: 048
     Dates: start: 20080611
  3. TRUVADA [Concomitant]
  4. SULFAMETHOXAZOLE AND TRIMETHOPRIM [Concomitant]
  5. ZIDOVUDINE [Concomitant]
  6. ZOLPIDEM TARTRATE [Concomitant]

REACTIONS (4)
  - HALLUCINATION [None]
  - HALLUCINATION, AUDITORY [None]
  - PARANOIA [None]
  - PARANOID PERSONALITY DISORDER [None]
